FAERS Safety Report 9898092 (Version 2)
Quarter: 2014Q1

REPORT INFORMATION
  Report Type: Spontaneous
  Country: IT (occurrence: IT)
  Receive Date: 20140214
  Receipt Date: 20140214
  Transmission Date: 20141002
  Serious: Yes (Other)
  Sender: FDA-Public Use
  Company Number: IT-ASTRAZENECA-2013SE92126

PATIENT
  Age: 13655 Day
  Sex: Female

DRUGS (1)
  1. MARCAINA [Suspect]
     Indication: SPINAL ANAESTHESIA
     Dosage: 5MG/ML INJECTED SOLUTION
     Route: 024
     Dates: start: 20131217, end: 20131217

REACTIONS (2)
  - Anaesthetic complication [Recovered/Resolved]
  - Drug ineffective [Recovered/Resolved]
